FAERS Safety Report 4394575-9 (Version None)
Quarter: 2004Q3

REPORT INFORMATION
  Report Type: 
  Country: None (occurrence: None)
  Receive Date: 20040712
  Receipt Date: 20040513
  Transmission Date: 20050211
  Serious: Yes (Other)
  Sender: FDA-Public Use
  Company Number: US-ROCHE-367884

PATIENT
  Age: 20 Year
  Sex: Female
  Weight: 57.6 kg

DRUGS (3)
  1. XENICAL [Suspect]
     Indication: OBESITY
     Route: 048
     Dates: start: 20030730, end: 20030817
  2. KEPPRA [Suspect]
     Route: 048
  3. LAMICTAL [Suspect]
     Route: 048

REACTIONS (3)
  - AURA [None]
  - CONVULSION [None]
  - DRUG EFFECT DECREASED [None]
